FAERS Safety Report 21678478 (Version 2)
Quarter: 2023Q1

REPORT INFORMATION
  Report Type: Spontaneous
  Country: US (occurrence: US)
  Receive Date: 20221203
  Receipt Date: 20230117
  Transmission Date: 20230417
  Serious: Yes (Hospitalization, Other)
  Sender: FDA-Public Use
  Company Number: US-Accord-288891

PATIENT
  Age: 20 Year
  Sex: Male

DRUGS (4)
  1. TOPIRAMATE [Suspect]
     Active Substance: TOPIRAMATE
     Indication: Insomnia
     Dosage: 200 MG AT BEDTIME
  2. OXCARBAZEPINE [Suspect]
     Active Substance: OXCARBAZEPINE
     Indication: Disruptive mood dysregulation disorder
     Dosage: 600 MG BID
  3. LORAZEPAM [Concomitant]
     Active Substance: LORAZEPAM
     Indication: Generalised anxiety disorder
     Dosage: 1 MG TID
  4. CLONIDINE [Concomitant]
     Active Substance: CLONIDINE
     Indication: Generalised anxiety disorder
     Dosage: 0.2 MG BID

REACTIONS (2)
  - Neuroleptic malignant syndrome [Recovered/Resolved]
  - Drug withdrawal syndrome [Unknown]
